FAERS Safety Report 16008246 (Version 1)
Quarter: 2019Q1

REPORT INFORMATION
  Report Type: Report from Study
  Country: BR (occurrence: BR)
  Receive Date: 20190226
  Receipt Date: 20190226
  Transmission Date: 20190418
  Serious: Yes (Other)
  Sender: FDA-Public Use
  Company Number: BR-BEH-2019099697

PATIENT
  Age: 6 Year
  Sex: Female

DRUGS (1)
  1. ALBUMIN HUMAN (GENERIC) [Suspect]
     Active Substance: ALBUMIN HUMAN
     Indication: PRODUCT USED FOR UNKNOWN INDICATION
     Route: 065

REACTIONS (4)
  - Tachypnoea [Unknown]
  - Pyrexia [Unknown]
  - Chest pain [Unknown]
  - Tremor [Unknown]
